FAERS Safety Report 7955751-9 (Version None)
Quarter: 2011Q4

REPORT INFORMATION
  Report Type: 
  Country: None (occurrence: None)
  Receive Date: 20111204
  Receipt Date: 20050601
  Transmission Date: 20120403
  Serious: Yes (Other)
  Sender: FDA-Public Use
  Company Number: PHHY2005MX006994

PATIENT
  Sex: Male

DRUGS (1)
  1. LAMISIL [Suspect]
     Indication: ONYCHOMYCOSIS
     Dosage: 250 MG, EVERY DAY
     Route: 048
     Dates: start: 20040601

REACTIONS (3)
  - HEPATOMEGALY [None]
  - HEPATIC PAIN [None]
  - GENERAL PHYSICAL HEALTH DETERIORATION [None]
